FAERS Safety Report 15475185 (Version 1)
Quarter: 2018Q4

REPORT INFORMATION
  Report Type: Spontaneous
  Country: US (occurrence: US)
  Receive Date: 20181008
  Receipt Date: 20181008
  Transmission Date: 20190205
  Serious: No
  Sender: FDA-Public Use
  Company Number: US-SA-2018SA274457

PATIENT
  Age: 42 Year
  Sex: Female

DRUGS (1)
  1. CAMPATH [Suspect]
     Active Substance: ALEMTUZUMAB
     Dosage: 3 MG
     Route: 041

REACTIONS (3)
  - Erythema [Unknown]
  - Hypersensitivity [Unknown]
  - Throat irritation [Unknown]

NARRATIVE: CASE EVENT DATE: 20181001
